FAERS Safety Report 21092656 (Version 1)
Quarter: 2022Q3

REPORT INFORMATION
  Report Type: Spontaneous
  Country: AU (occurrence: AU)
  Receive Date: 20220718
  Receipt Date: 20220718
  Transmission Date: 20221027
  Serious: Yes (Other)
  Sender: FDA-Public Use
  Company Number: AU-AMGEN-AUSSP2022118891

PATIENT
  Sex: Female

DRUGS (2)
  1. XGEVA [Suspect]
     Active Substance: DENOSUMAB
     Indication: Breast cancer metastatic
     Route: 065
  2. XGEVA [Suspect]
     Active Substance: DENOSUMAB
     Indication: Metastases to bone

REACTIONS (7)
  - Metastases to bone [Unknown]
  - Osteonecrosis of jaw [Unknown]
  - Metastases to liver [Unknown]
  - Rebound effect [Unknown]
  - Hypercalcaemia [Unknown]
  - Disease progression [Unknown]
  - Blood parathyroid hormone decreased [Unknown]
